FAERS Safety Report 9938049 (Version 1)
Quarter: 2014Q1

REPORT INFORMATION
  Report Type: Report from Study
  Country: US (occurrence: US)
  Receive Date: 20140303
  Receipt Date: 20140303
  Transmission Date: 20141002
  Serious: Yes (Other)
  Sender: FDA-Public Use
  Company Number: US-ROCHE-1342287

PATIENT
  Sex: Female

DRUGS (4)
  1. LUCENTIS [Suspect]
     Indication: CYSTOID MACULAR OEDEMA
     Dosage: OD
     Route: 050
  2. LUCENTIS [Suspect]
     Route: 050
     Dates: start: 20110607
  3. AVASTIN [Suspect]
     Indication: CYSTOID MACULAR OEDEMA
     Dosage: X 8, OD
     Route: 065
  4. AZOPT [Concomitant]
     Route: 065

REACTIONS (6)
  - Eyelids pruritus [Unknown]
  - Conjunctivitis [Unknown]
  - Eyelid margin crusting [Unknown]
  - Asthenopia [Unknown]
  - Vitreous floaters [Unknown]
  - Off label use [Unknown]
